FAERS Safety Report 7611916-7 (Version None)
Quarter: 2011Q3

REPORT INFORMATION
  Report Type: 
  Country: None (occurrence: None)
  Receive Date: 20110715
  Receipt Date: 20110713
  Transmission Date: 20111222
  Serious: Yes (Death)
  Sender: FDA-Public Use
  Company Number: US-PFIZER INC-2011157556

PATIENT
  Sex: Male
  Weight: 113 kg

DRUGS (15)
  1. IBUPROFEN [Suspect]
     Indication: OSTEOARTHRITIS
     Dosage: 600 MG, 3X/DAY
     Route: 048
     Dates: start: 20110607
  2. NEXIUM [Concomitant]
     Indication: PROPHYLAXIS
     Dosage: 20 OR 40 MG, 1X/DAY
     Route: 048
     Dates: start: 20110607
  3. ALLOPURINOL [Concomitant]
     Dosage: UNK
     Route: 048
     Dates: start: 20060101
  4. IBUPROFEN [Suspect]
     Indication: RHEUMATOID ARTHRITIS
  5. VARDENAFIL [Concomitant]
     Indication: ERECTILE DYSFUNCTION
     Dosage: 20 MG, AS NEEDED
     Route: 048
     Dates: start: 20010101
  6. AMLODIPINE [Concomitant]
     Dosage: UNK
     Route: 048
     Dates: start: 19980101
  7. FLUNISOLIDE [Concomitant]
     Dosage: UNK
     Route: 048
     Dates: start: 20060101
  8. TERBINAFINE HYDROCHLORIDE [Concomitant]
     Dosage: 1%
     Route: 061
     Dates: start: 20060101
  9. POTASSIUM CHLORIDE [Concomitant]
     Dosage: UNK
     Route: 048
     Dates: start: 19980101
  10. ACETYLSALICYLIC ACID [Concomitant]
     Dosage: UNK
     Route: 048
     Dates: start: 20000101
  11. ROSUVASTATIN [Concomitant]
     Dosage: UNK
     Route: 048
     Dates: start: 20110401
  12. INDAPAMIDE [Concomitant]
     Dosage: UNK
     Route: 048
     Dates: start: 20010101
  13. LORATADINE [Concomitant]
     Dosage: UNK
     Route: 048
     Dates: start: 20060101
  14. ATENOLOL [Concomitant]
     Dosage: UNK
     Route: 048
     Dates: start: 19980101
  15. TERAZOSIN [Concomitant]
     Dosage: UNK
     Route: 048
     Dates: start: 20090101

REACTIONS (1)
  - DEATH [None]
